FAERS Safety Report 5774106-9 (Version None)
Quarter: 2008Q2

REPORT INFORMATION
  Report Type: 
  Country: None (occurrence: None)
  Receive Date: 20080616
  Receipt Date: 20080605
  Transmission Date: 20081010
  Serious: Yes (Other)
  Sender: FDA-Public Use
  Company Number: US-BAYER-200811699BCC

PATIENT
  Age: 75 Year
  Sex: Female
  Weight: 82 kg

DRUGS (9)
  1. ALEVE (CAPLET) [Suspect]
     Indication: ANALGESIA
     Dosage: AS USED: 220 MG  UNIT DOSE: 220 MG
     Route: 048
     Dates: start: 20080424, end: 20080401
  2. ALEVE (CAPLET) [Suspect]
     Dosage: AS USED: 220 MG  UNIT DOSE: 220 MG
     Route: 048
     Dates: start: 20080426
  3. ASPIRIN [Suspect]
     Indication: ISCHAEMIC HEART DISEASE PROPHYLAXIS
     Dosage: TOTAL DAILY DOSE: 81 MG  UNIT DOSE: 81 MG
     Route: 048
     Dates: start: 19880101
  4. LISINOPRIL [Concomitant]
  5. LIPITOR [Concomitant]
  6. MULTIVITAMIN (EQUATE) [Concomitant]
  7. CALTRATE [Concomitant]
  8. TRIAMTERENE [Concomitant]
  9. XALATAN [Concomitant]

REACTIONS (2)
  - HAEMATOCHEZIA [None]
  - RECTAL HAEMORRHAGE [None]
